FAERS Safety Report 6820938-5 (Version None)
Quarter: 2010Q3

REPORT INFORMATION
  Report Type: 
  Country: None (occurrence: None)
  Receive Date: 20100707
  Receipt Date: 20071128
  Transmission Date: 20110219
  Serious: No
  Sender: FDA-Public Use
  Company Number: US-PFIZER INC-2006036507

PATIENT
  Sex: Female
  Weight: 52.16 kg

DRUGS (1)
  1. ZOLOFT [Suspect]
     Dosage: 200 MG, 1X/DAY
     Route: 065
     Dates: start: 20050101

REACTIONS (1)
  - NAUSEA [None]
